FAERS Safety Report 16287092 (Version 6)
Quarter: 2020Q1

REPORT INFORMATION
  Report Type: Report from Study
  Country: CA (occurrence: CA)
  Receive Date: 20190508
  Receipt Date: 20200311
  Transmission Date: 20200409
  Serious: Yes (Hospitalization)
  Sender: FDA-Public Use
  Company Number: CA-JNJFOC-20190330521

PATIENT
  Age: 62 Year
  Sex: Male
  Weight: 75 kg

DRUGS (3)
  1. REMICADE [Suspect]
     Active Substance: INFLIXIMAB
     Indication: CROHN^S DISEASE
     Route: 042
     Dates: start: 20120430
  2. REMICADE [Suspect]
     Active Substance: INFLIXIMAB
     Route: 042
  3. REMICADE [Suspect]
     Active Substance: INFLIXIMAB
     Dosage: ON 27-JAN-2020, THE PATIENT RECEIVED 64TH INFLIXIMAB, RECOMBINANT INFUSION WITH A DOSE OF 700 MG
     Route: 042

REACTIONS (6)
  - Off label use [Unknown]
  - Infection [Recovered/Resolved]
  - Gallbladder neoplasm [Unknown]
  - Abdominal mass [Recovered/Resolved]
  - Product use issue [Unknown]
  - Abdominal pain [Not Recovered/Not Resolved]

NARRATIVE: CASE EVENT DATE: 20120430
